FAERS Safety Report 24373045 (Version 8)
Quarter: 2025Q3

REPORT INFORMATION
  Report Type: Report from Study
  Country: US (occurrence: US)
  Receive Date: 20240927
  Receipt Date: 20250828
  Transmission Date: 20251020
  Serious: Yes (Hospitalization, Other)
  Sender: SUNOVION
  Company Number: US-SUMITOMO PHARMA SWITZERLAND GMBH-2024SPA003075

PATIENT
  Age: 74 Year
  Sex: Male

DRUGS (25)
  1. ORGOVYX [Suspect]
     Active Substance: RELUGOLIX
     Indication: Prostate cancer
     Dosage: 360 MG, SINGLE
     Route: 048
     Dates: start: 202408, end: 202408
  2. ORGOVYX [Suspect]
     Active Substance: RELUGOLIX
     Dosage: 120 MG, QD
     Route: 048
     Dates: start: 202408
  3. NUBEQA [Suspect]
     Active Substance: DAROLUTAMIDE
     Indication: Product used for unknown indication
  4. AMLODIPINE [Concomitant]
     Active Substance: AMLODIPINE BESYLATE
  5. BENAZEPRIL [Concomitant]
     Active Substance: BENAZEPRIL HYDROCHLORIDE
  6. CALCIUM\CHOLECALCIFEROL [Concomitant]
     Active Substance: CALCIUM\CHOLECALCIFEROL
  7. CITALOPRAM [Concomitant]
     Active Substance: CITALOPRAM
  8. FAMOTIDINE [Concomitant]
     Active Substance: FAMOTIDINE
  9. GLIPIZIDE [Concomitant]
     Active Substance: GLIPIZIDE
  10. Glucosamine MSM [Concomitant]
  11. LANTUS SOLOSTAR [Concomitant]
     Active Substance: INSULIN GLARGINE
     Route: 058
  12. Mega taurine [Concomitant]
  13. VITAMINS [Concomitant]
     Active Substance: VITAMINS
  14. PIOGLITAZONE [Concomitant]
     Active Substance: PIOGLITAZONE
  15. ROSUVASTATIN [Concomitant]
     Active Substance: ROSUVASTATIN
  16. VITAMIN B [Concomitant]
     Active Substance: VITAMIN B
  17. VITAMIN C [Concomitant]
     Active Substance: ASCORBIC ACID
  18. VITAMIN D [Concomitant]
     Active Substance: VITAMIN D NOS
  19. VITAMIN E [Concomitant]
     Active Substance: .ALPHA.-TOCOPHEROL
  20. SODIUM BICARBONATE [Concomitant]
     Active Substance: SODIUM BICARBONATE
  21. TAURINE [Concomitant]
     Active Substance: TAURINE
  22. FERROUS SULFATE [Concomitant]
     Active Substance: FERROUS SULFATE
  23. CALCIUM [Concomitant]
     Active Substance: CALCIUM
  24. MOUNJARO [Concomitant]
     Active Substance: TIRZEPATIDE
     Route: 058
  25. VITAMIN D3 [Concomitant]
     Active Substance: CHOLECALCIFEROL

REACTIONS (17)
  - Loss of consciousness [Unknown]
  - Muscle strain [Unknown]
  - Urosepsis [Unknown]
  - Acute kidney injury [Unknown]
  - Gait disturbance [Unknown]
  - Face injury [Unknown]
  - Urinary tract infection [Unknown]
  - Fall [Unknown]
  - Chills [Unknown]
  - Rhinorrhoea [Unknown]
  - Blood iron decreased [Unknown]
  - Weight decreased [Unknown]
  - Dizziness [Unknown]
  - Fatigue [Unknown]
  - Asthenia [Unknown]
  - Diarrhoea [Unknown]
  - Product dose omission issue [Recovered/Resolved]

NARRATIVE: CASE EVENT DATE: 20240830
